FAERS Safety Report 20531096 (Version 7)
Quarter: 2023Q1

REPORT INFORMATION
  Report Type: Report from Study
  Country: US (occurrence: US)
  Receive Date: 20220301
  Receipt Date: 20230215
  Transmission Date: 20230417
  Serious: Yes (Hospitalization, Other)
  Sender: FDA-Public Use
  Company Number: US-NOVARTISPH-NVSC2022US044542

PATIENT
  Sex: Female
  Weight: 74.83 kg

DRUGS (5)
  1. TREPROSTINIL [Suspect]
     Active Substance: TREPROSTINIL
     Indication: Pulmonary arterial hypertension
     Dosage: 41 NG/KG/MIN, CONT
     Route: 058
     Dates: start: 20211221
  2. TREPROSTINIL [Suspect]
     Active Substance: TREPROSTINIL
     Dosage: 41 NG/KG/MIN, CONT
     Route: 058
  3. TREPROSTINIL [Suspect]
     Active Substance: TREPROSTINIL
     Dosage: 41 NG/KG/MI, CONT
     Route: 058
  4. AMBRISENTAN [Concomitant]
     Active Substance: AMBRISENTAN
     Indication: Product used for unknown indication
     Dosage: UNK
     Route: 065
  5. SILDENAFIL CITRATE [Concomitant]
     Active Substance: SILDENAFIL CITRATE
     Indication: Product used for unknown indication
     Dosage: UNK
     Route: 065

REACTIONS (10)
  - Abdominal discomfort [Recovering/Resolving]
  - Pneumonitis [Unknown]
  - Systemic lupus erythematosus [Unknown]
  - Headache [Unknown]
  - Scleroderma [Unknown]
  - Hypersensitivity [Unknown]
  - Dehydration [Unknown]
  - Food poisoning [Unknown]
  - Vomiting [Unknown]
  - Injection site cellulitis [Unknown]
